FAERS Safety Report 6818964-5 (Version None)
Quarter: 2010Q3

REPORT INFORMATION
  Report Type: 
  Country: None (occurrence: None)
  Receive Date: 20100707
  Receipt Date: 20100318
  Transmission Date: 20110219
  Serious: Yes (Hospitalization, Other)
  Sender: FDA-Public Use
  Company Number: US-ASTRAZENECA-2010SE30967

PATIENT
  Age: 45 Year
  Sex: Female

DRUGS (9)
  1. SEROQUEL [Suspect]
     Route: 048
     Dates: start: 20040630
  2. LEVOTHYROXINE SODIUM [Concomitant]
     Dosage: 200MCG AT MORNING
     Dates: start: 20090602
  3. XANAX [Concomitant]
     Dates: start: 20090602
  4. DIGOXIN [Concomitant]
     Dosage: 25 MCG QAM
     Dates: start: 20090602
  5. CLONAZEPAM [Concomitant]
     Dates: start: 20040630
  6. MIRTAZAPINE [Concomitant]
     Dates: start: 20040630
  7. LEXAPRO [Concomitant]
     Dates: start: 20040630
  8. EFFEXOR XR [Concomitant]
     Dates: start: 20040630
  9. NEURONTIN [Concomitant]
     Dates: start: 20041004

REACTIONS (20)
  - ACUTE RESPIRATORY DISTRESS SYNDROME [None]
  - BIPOLAR DISORDER [None]
  - CARDIAC DISORDER [None]
  - CEREBROVASCULAR ACCIDENT [None]
  - DEPRESSION [None]
  - DIABETES MELLITUS [None]
  - ENCEPHALOPATHY [None]
  - HEPATIC ENCEPHALOPATHY [None]
  - HYPERHOMOCYSTEINAEMIA [None]
  - HYPOTHYROIDISM [None]
  - HYPOXIA [None]
  - MULTI-ORGAN DISORDER [None]
  - MULTIPLE SCLEROSIS [None]
  - NEUROPATHY PERIPHERAL [None]
  - PANCREATITIS [None]
  - RENAL FAILURE ACUTE [None]
  - RESPIRATORY FAILURE [None]
  - RHABDOMYOLYSIS [None]
  - SEPSIS SYNDROME [None]
  - SYSTEMIC INFLAMMATORY RESPONSE SYNDROME [None]
